FAERS Safety Report 5534634-8 (Version None)
Quarter: 2007Q4

REPORT INFORMATION
  Report Type: 
  Country: None (occurrence: None)
  Receive Date: 20071205
  Receipt Date: 20071126
  Transmission Date: 20080405
  Serious: Yes (Hospitalization, Other)
  Sender: FDA-Public Use
  Company Number: DE-JNJFOC-20071003197

PATIENT
  Age: 72 Year
  Sex: Male

DRUGS (3)
  1. TAVANIC [Suspect]
     Indication: STAPHYLOCOCCAL INFECTION
     Route: 048
     Dates: start: 20070807, end: 20070907
  2. CEFACLOR [Suspect]
     Indication: DRUG USE FOR UNKNOWN INDICATION
     Route: 065
  3. EMBOLEX [Concomitant]
     Indication: THROMBOSIS
     Route: 065

REACTIONS (3)
  - MUSCULOSKELETAL PAIN [None]
  - TENDON RUPTURE [None]
  - THROMBOSIS [None]
